FAERS Safety Report 6093548-8 (Version None)
Quarter: 2009Q1

REPORT INFORMATION
  Report Type: 
  Country: None (occurrence: None)
  Receive Date: 20090226
  Receipt Date: 20090216
  Transmission Date: 20090719
  Serious: Yes (Hospitalization, Other)
  Sender: FDA-Public Use
  Company Number: US-TEVA-185760USA

PATIENT
  Age: 47 Year
  Sex: Male

DRUGS (3)
  1. FAMOTIDINE 20 MG + 40 MG TABLETS [Suspect]
     Indication: CHOLECYSTITIS ACUTE
  2. MORPHINE [Suspect]
     Indication: CHOLECYSTITIS ACUTE
  3. CEFOXITIN [Suspect]
     Indication: CHOLECYSTITIS ACUTE

REACTIONS (2)
  - HEPATITIS [None]
  - RENAL INJURY [None]
